FAERS Safety Report 6546837-4 (Version None)
Quarter: 2010Q1

REPORT INFORMATION
  Report Type: 
  Country: None (occurrence: None)
  Receive Date: 20100122
  Receipt Date: 20100110
  Transmission Date: 20100710
  Serious: Yes (Death, Other)
  Sender: FDA-Public Use
  Company Number: CY-PFIZER INC-2010003479

PATIENT
  Age: 72 Year
  Sex: Female

DRUGS (1)
  1. SUTENT [Suspect]
     Indication: RENAL CANCER
     Dosage: UNK
     Route: 048
     Dates: start: 20091201, end: 20100101

REACTIONS (12)
  - ABDOMINAL PAIN UPPER [None]
  - DYSPHAGIA [None]
  - ENDOCARDITIS [None]
  - IMMUNE SYSTEM DISORDER [None]
  - LEFT VENTRICULAR FAILURE [None]
  - MALAISE [None]
  - MITRAL VALVE INCOMPETENCE [None]
  - NAUSEA [None]
  - PULMONARY HYPERTENSION [None]
  - PULMONARY OEDEMA [None]
  - TACHYCARDIA [None]
  - TRICUSPID VALVE INCOMPETENCE [None]
